FAERS Safety Report 7526308-9 (Version None)
Quarter: 2011Q2

REPORT INFORMATION
  Report Type: 
  Country: None (occurrence: None)
  Receive Date: 20110606
  Receipt Date: 20110524
  Transmission Date: 20111010
  Serious: Yes (Hospitalization)
  Sender: FDA-Public Use
  Company Number: US-BAYER-2011-009519

PATIENT
  Age: 38 Year
  Sex: Female
  Weight: 114.29 kg

DRUGS (6)
  1. YAZ [Suspect]
     Indication: PRODUCT USED FOR UNKNOWN INDICATION
     Dosage: UNK
     Dates: start: 20080808, end: 20090101
  2. ACETAMINOPHEN [Concomitant]
     Dosage: 325 MG, UNK
     Dates: start: 20080827
  3. AMOXICILLIN [Concomitant]
     Dosage: UNK
     Dates: start: 20080701
  4. OXYCODONE HCL [Concomitant]
     Dosage: 5 MG, UNK
     Dates: start: 20080827
  5. CLONAZEPAM [Concomitant]
  6. CYCLOBENZAPRINE [Concomitant]
     Dosage: UNK
     Dates: start: 20080827

REACTIONS (1)
  - DEEP VEIN THROMBOSIS [None]
